FAERS Safety Report 9736965 (Version 2)
Quarter: 2013Q4

REPORT INFORMATION
  Report Type: Report from Study
  Country: US (occurrence: US)
  Receive Date: 20131206
  Receipt Date: 20131220
  Transmission Date: 20140711
  Serious: Yes (Death, Hospitalization)
  Sender: FDA-Public Use
  Company Number: US-SA-2013SA125842

PATIENT
  Age: 60 Year
  Sex: Female

DRUGS (18)
  1. DOCETAXEL [Suspect]
     Indication: LUNG NEOPLASM MALIGNANT
     Route: 042
     Dates: start: 20131021, end: 20131021
  2. DOCETAXEL [Suspect]
     Indication: LUNG NEOPLASM MALIGNANT
     Route: 042
     Dates: start: 20131111, end: 20131111
  3. ALBUTEROL [Concomitant]
     Indication: DYSPNOEA
     Dosage: DAILY DOSE: 1 PUFF
     Route: 055
     Dates: start: 20131112
  4. PANTOPRAZOLE [Concomitant]
     Indication: ILL-DEFINED DISORDER
     Route: 048
     Dates: start: 20131112
  5. FUROSEMIDE [Concomitant]
     Indication: DYSPNOEA
     Route: 042
     Dates: start: 20131113, end: 20131113
  6. POTASSIUM CHLORIDE [Concomitant]
     Indication: BLOOD POTASSIUM DECREASED
     Route: 048
     Dates: start: 20131113, end: 20131113
  7. ZOLOFT [Concomitant]
     Indication: ANXIETY
     Route: 048
     Dates: end: 20131127
  8. ATIVAN [Concomitant]
     Indication: ANXIETY
     Route: 048
     Dates: end: 20131127
  9. OMEPRAZOLE [Concomitant]
     Indication: ILL-DEFINED DISORDER
     Route: 048
     Dates: end: 20131127
  10. VICODIN [Concomitant]
     Indication: PAIN
     Route: 048
     Dates: end: 20131127
  11. ROBITUSSIN WITH CODEINE [Concomitant]
     Indication: NASOPHARYNGITIS
     Dosage: DAILY DOSE: 5 ML (MILLIMETER, CM3)
     Route: 048
     Dates: end: 20131127
  12. DEXAMETHASONE [Concomitant]
     Indication: CHEMOTHERAPY
     Route: 048
     Dates: end: 20131127
  13. LOVENOX [Concomitant]
     Indication: PULMONARY EMBOLISM
     Route: 058
     Dates: start: 20131028, end: 20131127
  14. NYSTATIN [Concomitant]
     Indication: CANDIDA INFECTION
     Route: 048
     Dates: start: 20131024, end: 20131127
  15. SENNA [Concomitant]
     Indication: CONSTIPATION
     Route: 048
     Dates: start: 20131114, end: 20131127
  16. DULERA [Concomitant]
     Dosage: INHALER
  17. DOCUSATE SODIUM [Concomitant]
     Indication: CONSTIPATION
     Route: 048
     Dates: start: 20131114, end: 20131127
  18. MORPHINE SULFATE [Concomitant]
     Indication: PAIN
     Route: 042
     Dates: start: 20131113, end: 20131127

REACTIONS (2)
  - Acute respiratory distress syndrome [Fatal]
  - Atrial fibrillation [Recovered/Resolved]
